FAERS Safety Report 4780791-0 (Version None)
Quarter: 2005Q3

REPORT INFORMATION
  Report Type: 
  Country: None (occurrence: None)
  Receive Date: 20050927
  Receipt Date: 20050916
  Transmission Date: 20060218
  Serious: Yes (Hospitalization)
  Sender: FDA-Public Use
  Company Number: GB-MERCK-0509GBR00116

PATIENT
  Sex: Female

DRUGS (1)
  1. VIOXX [Suspect]
     Indication: RHEUMATOID ARTHRITIS
     Route: 048
     Dates: start: 20030101, end: 20041001

REACTIONS (4)
  - CHEST PAIN [None]
  - HYPERTENSION [None]
  - PALPITATIONS [None]
  - PULMONARY EMBOLISM [None]
